FAERS Safety Report 9995577 (Version 1)
Quarter: 2014Q1

REPORT INFORMATION
  Report Type: Spontaneous
  Country: US (occurrence: None)
  Receive Date: 20140218
  Receipt Date: 20140218
  Transmission Date: 20141002
  Serious: Yes (Other)
  Sender: FDA-Public Use
  Company Number: 1000051676

PATIENT
  Age: 64 Year
  Sex: Female

DRUGS (5)
  1. VIIBRYD [Suspect]
     Indication: ANXIETY
     Route: 048
     Dates: start: 20131114, end: 20131120
  2. MVI (VITAMINS NOS) [Concomitant]
  3. CALCIUM [Concomitant]
  4. OMEGA-3 [Concomitant]
  5. AMBIEN (ZOLPIDEM TARTRATE) [Concomitant]

REACTIONS (3)
  - Palpitations [None]
  - Agitation [None]
  - Off label use [None]
